FAERS Safety Report 10172358 (Version 2)
Quarter: 2014Q2

REPORT INFORMATION
  Report Type: Spontaneous
  Country: BR (occurrence: BR)
  Receive Date: 20140515
  Receipt Date: 20140618
  Transmission Date: 20141212
  Serious: Yes (Life-Threatening, Hospitalization)
  Sender: FDA-Public Use
  Company Number: BR-JNJFOC-20140506526

PATIENT
  Sex: Female
  Weight: 49 kg

DRUGS (3)
  1. IBUPROFEN [Suspect]
     Indication: RHEUMATOID ARTHRITIS
     Route: 065
  2. NAPROXEN [Suspect]
     Indication: RHEUMATOID ARTHRITIS
     Route: 065
  3. CELECOXIB [Suspect]
     Indication: RHEUMATOID ARTHRITIS
     Dosage: 2 TABLETS AT MORNING, 1 TABLET AFTER LUNCH, 3 TABLETS AT NIGHT
     Route: 048
     Dates: start: 2012, end: 201405

REACTIONS (2)
  - Heart injury [Unknown]
  - Infarction [Unknown]
